FAERS Safety Report 15622537 (Version 1)
Quarter: 2018Q4

REPORT INFORMATION
  Report Type: Spontaneous
  Country: US (occurrence: US)
  Receive Date: 20181115
  Receipt Date: 20181115
  Transmission Date: 20190205
  Serious: No
  Sender: FDA-Public Use
  Company Number: US-BAYER-2018-212543

PATIENT
  Age: 55 Year
  Sex: Female
  Weight: 96.6 kg

DRUGS (6)
  1. METFORMIN [Concomitant]
     Active Substance: METFORMIN HYDROCHLORIDE
     Indication: DIABETES MELLITUS
     Dosage: UNK
  2. CLARITIN [Suspect]
     Active Substance: LORATADINE
     Indication: HYPERSENSITIVITY
     Dosage: 1 DF, QD,MAYBE 20 USES
  3. CLARITIN [Suspect]
     Active Substance: LORATADINE
     Indication: NASOPHARYNGITIS
  4. OLMESARTAN [Concomitant]
     Active Substance: OLMESARTAN
     Indication: HYPERTENSION
     Dosage: UNK
  5. CALCIUM [CALCIUM] [Concomitant]
     Active Substance: CALCIUM
     Indication: THYROID THERAPY
     Dosage: UNK
  6. PRAZOSIN. [Concomitant]
     Active Substance: PRAZOSIN
     Indication: THYROID THERAPY
     Dosage: UNK

REACTIONS (2)
  - Poor quality product administered [Unknown]
  - Product quality issue [Unknown]
